FAERS Safety Report 24457648 (Version 2)
Quarter: 2024Q4

REPORT INFORMATION
  Report Type: Spontaneous
  Country: IL (occurrence: IL)
  Receive Date: 20241018
  Receipt Date: 20241029
  Transmission Date: 20250115
  Serious: Yes (Death, Hospitalization, Other)
  Sender: BIOVITRUM
  Company Number: IL-BIOVITRUM-2024-IL-013323

PATIENT
  Sex: Female

DRUGS (3)
  1. KINERET [Suspect]
     Active Substance: ANAKINRA
     Indication: Haemophagocytic lymphohistiocytosis
     Dosage: DAILY
  2. KINERET [Suspect]
     Active Substance: ANAKINRA
     Dosage: DAILY
  3. KINERET [Suspect]
     Active Substance: ANAKINRA
     Dosage: DAILY

REACTIONS (3)
  - Death [Fatal]
  - Off label use [Unknown]
  - COVID-19 [Unknown]
